FAERS Safety Report 6041791-6 (Version None)
Quarter: 2009Q1

REPORT INFORMATION
  Report Type: 
  Country: None (occurrence: None)
  Receive Date: 20090116
  Receipt Date: 20090115
  Transmission Date: 20090719
  Serious: Yes (Life-Threatening)
  Sender: FDA-Public Use
  Company Number: CA-ASTRAZENECA-2009UW01277

PATIENT
  Age: 74 Year
  Sex: Male
  Weight: 85 kg

DRUGS (2)
  1. NEXIUM [Suspect]
     Route: 048
  2. ACETAMINOPHEN [Suspect]
     Route: 065

REACTIONS (5)
  - DERMATITIS BULLOUS [None]
  - PRURITUS [None]
  - RASH [None]
  - SKIN BURNING SENSATION [None]
  - TOXIC EPIDERMAL NECROLYSIS [None]
